FAERS Safety Report 11912047 (Version 1)
Quarter: 2016Q1

REPORT INFORMATION
  Report Type: Other
  Country: GB (occurrence: GB)
  Receive Date: 20160112
  Receipt Date: 20160112
  Transmission Date: 20160526
  Serious: Yes (Hospitalization)
  Sender: FDA-Public Use
  Company Number: GB-MYLANLABS-2016M1000938

PATIENT

DRUGS (10)
  1. TIOTROPIUM [Concomitant]
     Active Substance: TIOTROPIUM
     Dosage: 18 ?G, QD (IN THE MORNING)
  2. TRIMETHOPRIM. [Suspect]
     Active Substance: TRIMETHOPRIM
     Indication: URINARY TRACT INFECTION
     Dosage: 200 MG, BID (FOR 7 DAYS)
     Route: 048
     Dates: start: 20151216
  3. SALBUTAMOL [Concomitant]
     Active Substance: ALBUTEROL
     Dosage: 200 ?G, UNK
     Route: 055
  4. MORPHINE SULPHATE [Concomitant]
     Active Substance: MORPHINE SULFATE
     Dosage: 5 MG, BID
  5. PREDNISOLONE. [Concomitant]
     Active Substance: PREDNISOLONE
     Dosage: 2 MG, QD (IN THE MORNING)
  6. FUROSEMIDE. [Suspect]
     Active Substance: FUROSEMIDE
     Indication: CARDIAC FAILURE CONGESTIVE
     Dosage: 40 MG, BID
     Route: 048
  7. CALCICHEW D3 [Concomitant]
     Active Substance: CALCIUM\CHOLECALCIFEROL
     Dosage: 1 DF, BID
  8. LOSARTAN. [Suspect]
     Active Substance: LOSARTAN
     Indication: HYPERTENSION
     Dosage: 50 MG, QD
     Route: 048
  9. SPIRONOLACTONE. [Suspect]
     Active Substance: SPIRONOLACTONE
     Indication: CARDIAC FAILURE CONGESTIVE
     Dosage: 25 MG, QD (IN THE MORNING)
     Route: 048
  10. QVAR [Concomitant]
     Active Substance: BECLOMETHASONE DIPROPIONATE
     Dosage: 100 ?G, BID
     Route: 055

REACTIONS (2)
  - Acute kidney injury [Recovering/Resolving]
  - Hyperkalaemia [Recovering/Resolving]
